FAERS Safety Report 23428335 (Version 1)
Quarter: 2024Q1

REPORT INFORMATION
  Report Type: Spontaneous
  Country: GB (occurrence: GB)
  Receive Date: 20240122
  Receipt Date: 20240122
  Transmission Date: 20240409
  Serious: Yes (Hospitalization)
  Sender: FDA-Public Use
  Company Number: GB-MYLANLABS-2024M1005452

PATIENT
  Age: 58 Year
  Sex: Male

DRUGS (1)
  1. CLOZARIL [Suspect]
     Active Substance: CLOZAPINE
     Indication: Schizophrenia
     Dosage: UNK
     Route: 048
     Dates: start: 20010701, end: 20231229

REACTIONS (3)
  - Urinary tract infection [Unknown]
  - Fall [Unknown]
  - Differential white blood cell count abnormal [Unknown]

NARRATIVE: CASE EVENT DATE: 20230101
